FAERS Safety Report 19866997 (Version 1)
Quarter: 2021Q3

REPORT INFORMATION
  Report Type: Spontaneous
  Country: US (occurrence: US)
  Receive Date: 20210921
  Receipt Date: 20210921
  Transmission Date: 20211014
  Serious: No
  Sender: FDA-Public Use
  Company Number: US-BRAINTREE LABORATORIES, INC.-2021BTE00317

PATIENT
  Age: 60 Year
  Sex: Female
  Weight: 76.2 kg

DRUGS (2)
  1. UNSPECIFIED VITAMIN SUPPLEMENTS [Concomitant]
  2. SUPREP BOWEL PREP [Suspect]
     Active Substance: MAGNESIUM SULFATE\POTASSIUM SULFATE\SODIUM SULFATE
     Indication: COLONOSCOPY
     Dosage: 0.25 X 6 OZ BOTTLE, 1X
     Route: 048
     Dates: start: 20210426

REACTIONS (1)
  - Retching [Unknown]

NARRATIVE: CASE EVENT DATE: 20210426
